FAERS Safety Report 9696922 (Version 2)
Quarter: 2013Q4

REPORT INFORMATION
  Report Type: Spontaneous
  Country: US (occurrence: US)
  Receive Date: 20131119
  Receipt Date: 20131119
  Transmission Date: 20140711
  Serious: No
  Sender: FDA-Public Use
  Company Number: US-GILEAD-2007-0013432

PATIENT
  Age: 59 Year
  Sex: Male
  Weight: 98.43 kg

DRUGS (8)
  1. LETAIRIS [Suspect]
     Indication: PULMONARY ARTERIAL HYPERTENSION
     Route: 048
     Dates: start: 20070830, end: 20070918
  2. DOXAZOSIN [Concomitant]
  3. FUROSEMIDE [Concomitant]
  4. ASPIRIN [Concomitant]
  5. REVATIO [Concomitant]
  6. ATARAX [Concomitant]
  7. KCL [Concomitant]
  8. REQUIP [Concomitant]

REACTIONS (14)
  - Vision blurred [Recovered/Resolved]
  - Periorbital oedema [Recovered/Resolved]
  - Fatigue [Recovered/Resolved]
  - Pulmonary oedema [Unknown]
  - Muscle twitching [Unknown]
  - Somnolence [Recovered/Resolved]
  - Fluid retention [Recovered/Resolved]
  - Dyspnoea [Recovered/Resolved]
  - Headache [Recovered/Resolved]
  - Unevaluable event [Recovered/Resolved]
  - Nasal congestion [Recovered/Resolved]
  - Palpitations [Unknown]
  - Local swelling [Unknown]
  - Weight increased [Recovered/Resolved]
